FAERS Safety Report 10433980 (Version 2)
Quarter: 2015Q2

REPORT INFORMATION
  Report Type: Spontaneous
  Country: US (occurrence: US)
  Receive Date: 20140905
  Receipt Date: 20150428
  Transmission Date: 20150821
  Serious: Yes (Death, Other)
  Sender: FDA-Public Use
  Company Number: US-GLAXOSMITHKLINE-A1087755A

PATIENT
  Sex: Female

DRUGS (1)
  1. ADVAIR HFA [Suspect]
     Active Substance: FLUTICASONE PROPIONATE\SALMETEROL XINAFOATE
     Indication: CHRONIC OBSTRUCTIVE PULMONARY DISEASE
     Dosage: 250/50MCG
     Route: 065
     Dates: start: 2012

REACTIONS (7)
  - Kidney infection [Unknown]
  - Cardiac failure congestive [Fatal]
  - Aortic stenosis [Fatal]
  - Lung neoplasm malignant [Fatal]
  - Dyspnoea [Unknown]
  - Treatment noncompliance [Unknown]
  - Chronic obstructive pulmonary disease [Fatal]
